FAERS Safety Report 6971647-3 (Version None)
Quarter: 2010Q3

REPORT INFORMATION
  Report Type: 
  Country: None (occurrence: None)
  Receive Date: 20100908
  Receipt Date: 20100827
  Transmission Date: 20110219
  Serious: Yes (Other)
  Sender: FDA-Public Use
  Company Number: PHHY2009GB57407

PATIENT
  Sex: Male

DRUGS (8)
  1. CLOZARIL [Suspect]
     Indication: SCHIZOPHRENIA
     Dosage: 300 MG
     Route: 048
     Dates: start: 20051201
  2. AMISULPRIDE [Suspect]
     Indication: SCHIZOPHRENIA
     Dosage: 200 MG
     Route: 048
  3. LAMOTRIGINE [Concomitant]
     Indication: EPILEPSY
     Dosage: 200 MG
     Route: 048
  4. VALPROATE SODIUM [Concomitant]
     Indication: EPILEPSY
     Dosage: 500 MG, BID
     Route: 048
  5. LEVOTHYROXINE SODIUM [Concomitant]
     Indication: HYPOTHYROIDISM
     Dosage: 225 UG, QD
  6. AMITRIPTYLINE HYDROCHLORIDE [Concomitant]
     Indication: HEADACHE
     Dosage: 20 MG
     Route: 048
  7. PROCYCLIDINE HYDROCHLORIDE 2MG TAB [Concomitant]
     Indication: HEADACHE
     Dosage: 5 MG, TID
     Route: 048
  8. KEPPRA [Concomitant]
     Indication: EPILEPSY
     Dosage: 750 MG, BID

REACTIONS (4)
  - CHRONIC LYMPHOCYTIC LEUKAEMIA [None]
  - LYMPHOCYTE COUNT INCREASED [None]
  - MONOCYTE COUNT INCREASED [None]
  - WHITE BLOOD CELL COUNT INCREASED [None]
